FAERS Safety Report 9536499 (Version 2)
Quarter: 2013Q3

REPORT INFORMATION
  Report Type: Spontaneous
  Country: GB (occurrence: GB)
  Receive Date: 20130919
  Receipt Date: 20130926
  Transmission Date: 20140515
  Serious: Yes (Other)
  Sender: FDA-Public Use
  Company Number: GB-ASTELLAS-2013EU007938

PATIENT
  Sex: Female
  Weight: 63 kg

DRUGS (5)
  1. VESICARE [Suspect]
     Dosage: 5 MG, UID/QD
     Route: 065
     Dates: start: 20130312, end: 20130411
  2. VESICARE [Suspect]
     Dosage: 5 MG, UID/QD
     Route: 065
     Dates: start: 20130408, end: 20130508
  3. VESICARE [Suspect]
     Dosage: 5 MG, UID/QD
     Route: 065
     Dates: start: 20130502, end: 20130601
  4. VESICARE [Suspect]
     Dosage: 5 MG, UID/QD
     Route: 065
     Dates: start: 20130603, end: 20130703
  5. VESICARE [Suspect]
     Dosage: 5 MG, UID/QD
     Route: 065
     Dates: start: 20130808, end: 20130907

REACTIONS (4)
  - Off label use [Unknown]
  - Intentional drug misuse [Unknown]
  - Urinary tract infection [Unknown]
  - Oedema peripheral [Not Recovered/Not Resolved]
